FAERS Safety Report 5475162-8 (Version None)
Quarter: 2007Q4

REPORT INFORMATION
  Report Type: 
  Country: None (occurrence: None)
  Receive Date: 20071002
  Receipt Date: 20070920
  Transmission Date: 20080405
  Serious: Yes (Hospitalization)
  Sender: FDA-Public Use
  Company Number: US-ELI_LILLY_AND_COMPANY-US200708002856

PATIENT
  Age: 72 Year
  Sex: Female

DRUGS (10)
  1. CALCIUM [Concomitant]
  2. VITAMIN D [Concomitant]
  3. FORTEO [Suspect]
     Indication: OSTEOPOROSIS
     Dates: start: 20060101
  4. ZOCOR [Concomitant]
  5. PEPCID [Concomitant]
     Indication: GASTROOESOPHAGEAL REFLUX DISEASE
  6. INDERAL [Concomitant]
  7. SYNTHROID [Concomitant]
  8. ASPIRIN [Concomitant]
  9. VITAMINS [Concomitant]
  10. ANTIBIOTICS [Concomitant]

REACTIONS (3)
  - CORONARY ARTERY DISEASE [None]
  - HEART RATE INCREASED [None]
  - POST PROCEDURAL DISCOMFORT [None]
